FAERS Safety Report 9974204 (Version 1)
Quarter: 2014Q1

REPORT INFORMATION
  Report Type: Spontaneous
  Country: IE (occurrence: IE)
  Receive Date: 20140306
  Receipt Date: 20140306
  Transmission Date: 20141002
  Serious: Yes (Hospitalization)
  Sender: FDA-Public Use
  Company Number: IE-GLAXOSMITHKLINE-B0974745A

PATIENT
  Age: 71 Year
  Sex: Female

DRUGS (5)
  1. VOTRIENT [Suspect]
     Indication: PRODUCT USED FOR UNKNOWN INDICATION
     Dosage: 600MG PER DAY
     Route: 048
     Dates: start: 20140127, end: 20140211
  2. SELECTOL [Concomitant]
     Indication: BLOOD PRESSURE
     Dosage: 200MG PER DAY
     Route: 048
     Dates: start: 201203
  3. TEVETEN [Concomitant]
     Indication: BLOOD PRESSURE
     Dosage: 400MG PER DAY
     Route: 048
     Dates: start: 201203
  4. DIAMICRON [Concomitant]
     Indication: BLOOD GLUCOSE INCREASED
     Dosage: 30MG PER DAY
     Route: 048
     Dates: start: 20131113
  5. CARDURA XL [Concomitant]
     Indication: BLOOD PRESSURE
     Dosage: 5MG PER DAY
     Route: 048
     Dates: start: 201203

REACTIONS (9)
  - Nausea [Not Recovered/Not Resolved]
  - Vomiting [Not Recovered/Not Resolved]
  - Decreased appetite [Not Recovered/Not Resolved]
  - Confusional state [Not Recovered/Not Resolved]
  - Agitation [Not Recovered/Not Resolved]
  - Lethargy [Not Recovered/Not Resolved]
  - Feeling cold [Not Recovered/Not Resolved]
  - Eructation [Not Recovered/Not Resolved]
  - Flatulence [Not Recovered/Not Resolved]
